FAERS Safety Report 5455917-6 (Version None)
Quarter: 2007Q3

REPORT INFORMATION
  Report Type: 
  Country: None (occurrence: None)
  Receive Date: 20070918
  Receipt Date: 20070228
  Transmission Date: 20080115
  Serious: Yes (Other)
  Sender: FDA-Public Use
  Company Number: US-ASTRAZENECA-2006UW24147

PATIENT
  Sex: Female
  Weight: 127.3 kg

DRUGS (3)
  1. SEROQUEL [Suspect]
     Indication: SCHIZOPHRENIA
     Route: 048
     Dates: start: 20030101
  2. HALDOL [Concomitant]
     Dates: start: 19900101, end: 20060101
  3. TRAZODONE HCL [Concomitant]
     Dates: start: 20060606, end: 20061229

REACTIONS (1)
  - TARDIVE DYSKINESIA [None]
